FAERS Safety Report 25222704 (Version 1)
Quarter: 2025Q2

REPORT INFORMATION
  Report Type: Spontaneous
  Country: CN (occurrence: CN)
  Receive Date: 20250422
  Receipt Date: 20250422
  Transmission Date: 20250716
  Serious: Yes (Hospitalization)
  Sender: Pangea Pharmaceuticals
  Company Number: CN-PANGEAPHARMA-2025PAN00006

PATIENT
  Age: 48 Year
  Sex: Male

DRUGS (13)
  1. DEXAMETHASONE [Suspect]
     Active Substance: DEXAMETHASONE
     Indication: Adhesion
     Dates: start: 2022
  2. DEXAMETHASONE [Suspect]
     Active Substance: DEXAMETHASONE
     Indication: Product used for unknown indication
  3. DEXAMETHASONE [Suspect]
     Active Substance: DEXAMETHASONE
     Indication: Listeriosis
  4. MOXIFLOXACIN [Suspect]
     Active Substance: MOXIFLOXACIN
     Indication: Listeriosis
     Dates: start: 2022
  5. MOXIFLOXACIN [Suspect]
     Active Substance: MOXIFLOXACIN
  6. MOXIFLOXACIN [Suspect]
     Active Substance: MOXIFLOXACIN
     Route: 042
  7. MEROPENEM [Concomitant]
     Active Substance: MEROPENEM
     Indication: Adhesion
     Dates: start: 2022
  8. MEROPENEM [Concomitant]
     Active Substance: MEROPENEM
  9. AMPICILLIN [Concomitant]
     Active Substance: AMPICILLIN
     Indication: Listeriosis
  10. AMPICILLIN [Concomitant]
     Active Substance: AMPICILLIN
     Dates: start: 2022
  11. AMPICILLIN [Concomitant]
     Active Substance: AMPICILLIN
     Route: 042
  12. UNSPECIFIED INGREDIENT [Concomitant]
     Active Substance: UNSPECIFIED INGREDIENT
     Indication: Listeriosis
     Dates: start: 2022
  13. UNSPECIFIED INGREDIENT [Concomitant]
     Active Substance: UNSPECIFIED INGREDIENT

REACTIONS (2)
  - Muscle injury [Not Recovered/Not Resolved]
  - Drug interaction [Not Recovered/Not Resolved]

NARRATIVE: CASE EVENT DATE: 20220101
